FAERS Safety Report 10385728 (Version 1)
Quarter: 2014Q3

REPORT INFORMATION
  Report Type: Spontaneous
  Country: US (occurrence: US)
  Receive Date: 20140814
  Receipt Date: 20140814
  Transmission Date: 20150326
  Serious: Yes (Other)
  Sender: FDA-Public Use
  Company Number: US-BAYER-2014-115710

PATIENT
  Age: 25 Year
  Sex: Female
  Weight: 95 kg

DRUGS (2)
  1. RID 1-2-3 SYSTEM [Suspect]
     Active Substance: PIPERONYL BUTOXIDE\PYRETHRUM EXTRACT
     Indication: LICE INFESTATION
     Dosage: DAY 8
     Dates: start: 20140711, end: 20140711
  2. RID 1-2-3 SYSTEM [Suspect]
     Active Substance: PIPERONYL BUTOXIDE\PYRETHRUM EXTRACT
     Indication: LICE INFESTATION
     Dosage: DAY 1
     Dates: start: 20140704, end: 20140704

REACTIONS (3)
  - Maternal exposure during pregnancy [None]
  - Urinary tract infection [None]
  - Vomiting [Recovered/Resolved]

NARRATIVE: CASE EVENT DATE: 20140705
